FAERS Safety Report 9386928 (Version 4)
Quarter: 2013Q3

REPORT INFORMATION
  Report Type: Spontaneous
  Country: US (occurrence: US)
  Receive Date: 20130708
  Receipt Date: 20130816
  Transmission Date: 20140515
  Serious: Yes (Hospitalization)
  Sender: FDA-Public Use
  Company Number: 2013SP004880

PATIENT
  Age: 59 Year
  Sex: Female
  Weight: 76.9 kg

DRUGS (28)
  1. CYTARABINE [Suspect]
     Indication: MYELODYSPLASTIC SYNDROME
     Route: 042
     Dates: start: 20130607, end: 20130613
  2. CEFTRIAXONE [Suspect]
     Indication: FEBRILE NEUTROPENIA
     Route: 042
     Dates: start: 20130619
  3. DAUNORUBICIN [Suspect]
     Indication: MYELODYSPLASTIC SYNDROME
     Route: 040
     Dates: start: 20130607, end: 20130610
  4. ACICLOVIR [Concomitant]
     Indication: ANTIVIRAL PROPHYLAXIS
     Dates: start: 20130608
  5. ALLOPURINOL [Concomitant]
     Indication: HYPERURICAEMIA
     Dates: start: 20130607, end: 20130610
  6. CALCIUM CARBONATE [Concomitant]
     Indication: GASTROOESOPHAGEAL REFLUX DISEASE
     Dates: start: 20130609, end: 20130611
  7. CHLORHEXIDINE [Concomitant]
     Indication: ANTIBIOTIC PROPHYLAXIS
     Dates: start: 20130608
  8. DOCUSATE [Concomitant]
     Indication: CONSTIPATION
     Dates: start: 20130607
  9. CYMBALTA [Concomitant]
     Indication: DEPRESSION
  10. FLUTICASONE PROPIONATE [Concomitant]
     Indication: ASTHMA
     Dates: start: 20130128
  11. SALMETEROL XINAFOATE [Concomitant]
     Indication: ASTHMA
     Dates: start: 20130128
  12. IBUPROFEN /00109205/ [Concomitant]
     Indication: OSTEOARTHRITIS
     Dates: start: 20130608, end: 20130613
  13. ATIVAN [Concomitant]
     Indication: NAUSEA
     Dates: start: 20130610
  14. MAGNESIUM OXIDE [Concomitant]
     Indication: HYPOMAGNESAEMIA
     Dates: start: 20130611, end: 20130611
  15. MICAFUNGIN [Concomitant]
     Indication: ANTIFUNGAL PROPHYLAXIS
     Dates: start: 20130614
  16. MORPHINE [Concomitant]
     Indication: OSTEOARTHRITIS
     Dates: start: 20130612
  17. OMEPRAZOLE [Concomitant]
     Indication: GASTROOESOPHAGEAL REFLUX DISEASE
     Dates: start: 20130610
  18. ONDANSETRON [Concomitant]
     Indication: NAUSEA
     Dates: start: 20130607
  19. OXYCODONE [Concomitant]
     Indication: OSTEOARTHRITIS
     Dates: start: 20130603
  20. POTASSIUM CHLORIDE [Concomitant]
     Indication: HYPOKALAEMIA
     Dates: start: 20130608, end: 20130620
  21. MACROGOL [Concomitant]
     Indication: CONSTIPATION
     Dates: start: 20130612
  22. SENNA ALEXANDRINA [Concomitant]
     Indication: CONSTIPATION
     Dates: start: 20130415, end: 20130611
  23. SIMETHICONE [Concomitant]
     Indication: ABDOMINAL PAIN
     Dates: start: 20130617, end: 20130617
  24. TRAZODONE [Concomitant]
     Indication: INSOMNIA
     Dates: start: 20130415
  25. ARMOUR THYROID [Concomitant]
     Indication: HYPOTHYROIDISM
     Dates: start: 20130614
  26. SALBUTAMOL [Concomitant]
     Indication: ASTHMA
  27. LEVOFLOXACIN [Concomitant]
     Indication: ANTIBIOTIC PROPHYLAXIS
     Dates: start: 20130608, end: 20130617
  28. ESTRADIOL [Concomitant]
     Indication: HORMONE THERAPY

REACTIONS (3)
  - Febrile neutropenia [Recovered/Resolved]
  - Rash generalised [Recovered/Resolved with Sequelae]
  - Myalgia [Recovered/Resolved with Sequelae]
